FAERS Safety Report 5663792-X (Version None)
Quarter: 2008Q1

REPORT INFORMATION
  Report Type: 
  Country: None (occurrence: None)
  Receive Date: 20080314
  Receipt Date: 20080303
  Transmission Date: 20080703
  Serious: Yes (Hospitalization)
  Sender: FDA-Public Use
  Company Number: FR-RANBAXY-2008RR-13474

PATIENT

DRUGS (4)
  1. IBUPROFENE RPG 200MG COMPRIME PELLICULE [Suspect]
     Indication: PHARYNGITIS
  2. IBUPROFENE RPG 200MG COMPRIME PELLICULE [Suspect]
     Indication: CONJUNCTIVITIS
  3. IBUPROFENE RPG 200MG COMPRIME PELLICULE [Suspect]
     Indication: PYREXIA
  4. AMOXICILLINE RPG 1G COMPRIME DISPERSIBLE [Suspect]

REACTIONS (2)
  - HEPATITIS CHOLESTATIC [None]
  - STEVENS-JOHNSON SYNDROME [None]
